FAERS Safety Report 4872798-X (Version None)
Quarter: 2005Q4

REPORT INFORMATION
  Report Type: 
  Country: None (occurrence: None)
  Receive Date: 20051201
  Receipt Date: 20050707
  Transmission Date: 20060501
  Serious: No
  Sender: FDA-Public Use
  Company Number: 2005PV000323

PATIENT
  Age: 57 Year
  Sex: Female
  Weight: 103.4201 kg

DRUGS (7)
  1. BYETTA [Suspect]
     Indication: DIABETES MELLITUS NON-INSULIN-DEPENDENT
     Dosage: 5 MCG; BID; SC
     Route: 058
     Dates: start: 20050601
  2. PROZAC [Concomitant]
  3. LIPITOR [Concomitant]
  4. AVALIDE [Concomitant]
  5. GLUCOTROL [Concomitant]
  6. GLUCOPHAGE [Concomitant]
  7. SYNTHROID [Concomitant]

REACTIONS (4)
  - BRONCHITIS [None]
  - COUGH [None]
  - DYSPNOEA [None]
  - SINUS CONGESTION [None]
